FAERS Safety Report 6637486-8 (Version None)
Quarter: 2010Q1

REPORT INFORMATION
  Report Type: 
  Country: None (occurrence: None)
  Receive Date: 20100317
  Receipt Date: 20100311
  Transmission Date: 20100710
  Serious: Yes (Hospitalization)
  Sender: FDA-Public Use
  Company Number: US-BIOGENIDEC-2009BI013475

PATIENT
  Age: 73 Year
  Sex: Female

DRUGS (1)
  1. AVONEX [Suspect]
     Indication: MULTIPLE SCLEROSIS
     Route: 030
     Dates: start: 19980801

REACTIONS (5)
  - ARTERIAL OCCLUSIVE DISEASE [None]
  - CATARACT [None]
  - DIABETES MELLITUS [None]
  - EPISTAXIS [None]
  - MYOCARDIAL INFARCTION [None]
